FAERS Safety Report 12394273 (Version 1)
Quarter: 2016Q2

REPORT INFORMATION
  Report Type: Report from Study
  Country: US (occurrence: US)
  Receive Date: 20160523
  Receipt Date: 20160523
  Transmission Date: 20160815
  Serious: Yes (Other)
  Sender: FDA-Public Use
  Company Number: US-ABBVIE-16K-163-1628276-00

PATIENT
  Age: 42 Year
  Sex: Female

DRUGS (1)
  1. HUMIRA [Suspect]
     Active Substance: ADALIMUMAB
     Indication: RHEUMATOID ARTHRITIS
     Route: 058
     Dates: start: 20160421

REACTIONS (9)
  - Impaired self-care [Unknown]
  - Activities of daily living impaired [Unknown]
  - Uterine polyp [Unknown]
  - Gait disturbance [Unknown]
  - Polyarthritis [Unknown]
  - Pain [Unknown]
  - Uterine leiomyoma [Unknown]
  - Anxiety [Unknown]
  - Back disorder [Unknown]

NARRATIVE: CASE EVENT DATE: 2016
